FAERS Safety Report 11663567 (Version 1)
Quarter: 2015Q4

REPORT INFORMATION
  Report Type: Spontaneous
  Country: US (occurrence: None)
  Receive Date: 20151026
  Receipt Date: 20151026
  Transmission Date: 20160304
  Serious: No
  Sender: FDA-Public Use
  Company Number: None

PATIENT
  Sex: Male

DRUGS (8)
  1. SAXENDA [Suspect]
     Active Substance: LIRAGLUTIDE
     Indication: DIABETES INSIPIDUS
     Route: 058
     Dates: start: 20150922
  2. VITAMIN C [Concomitant]
     Active Substance: ASCORBIC ACID
  3. CLONIDINE. [Concomitant]
     Active Substance: CLONIDINE
  4. JANTOVEN [Concomitant]
     Active Substance: WARFARIN SODIUM
  5. LEVOTHYROXIN [Concomitant]
     Active Substance: LEVOTHYROXINE
  6. DILTIAZEM [Concomitant]
     Active Substance: DILTIAZEM
  7. FUROSEMIDE. [Concomitant]
     Active Substance: FUROSEMIDE
  8. VITAMIN D3 [Concomitant]
     Active Substance: CHOLECALCIFEROL

REACTIONS (2)
  - Diarrhoea [None]
  - Muscle spasms [None]

NARRATIVE: CASE EVENT DATE: 2015
